FAERS Safety Report 21183334 (Version 2)
Quarter: 2022Q3

REPORT INFORMATION
  Report Type: Spontaneous
  Country: JP (occurrence: JP)
  Receive Date: 20220808
  Receipt Date: 20220808
  Transmission Date: 20221027
  Serious: Yes (Death, Other)
  Sender: FDA-Public Use
  Company Number: JP-002147023-NVSJ2022JP095425

PATIENT
  Age: 7 Month
  Weight: 0.456 kg

DRUGS (1)
  1. LUCENTIS [Suspect]
     Active Substance: RANIBIZUMAB
     Indication: Retinopathy of prematurity
     Dosage: 0.2 MG
     Route: 050
     Dates: start: 20220308, end: 20220308

REACTIONS (5)
  - Hepatic failure [Fatal]
  - Paralysis [Unknown]
  - Gastrointestinal necrosis [Unknown]
  - Peritonitis bacterial [Unknown]
  - Functional gastrointestinal disorder [Unknown]
